FAERS Safety Report 11287447 (Version 1)
Quarter: 2015Q3

REPORT INFORMATION
  Report Type: Report from Study
  Country: PH (occurrence: PH)
  Receive Date: 20150721
  Receipt Date: 20150721
  Transmission Date: 20151125
  Serious: Yes (Hospitalization)
  Sender: FDA-Public Use
  Company Number: PH-BRISTOL-MYERS SQUIBB COMPANY-BMS-2015-047522

PATIENT
  Age: 29 Year
  Sex: Female
  Weight: 65 kg

DRUGS (1)
  1. ARIPIPRAZOLE. [Suspect]
     Active Substance: ARIPIPRAZOLE
     Indication: AGITATION
     Dosage: 10 MG, PRN
     Route: 030
     Dates: start: 20150501

REACTIONS (2)
  - Aggression [Not Recovered/Not Resolved]
  - Verbal abuse [Not Recovered/Not Resolved]

NARRATIVE: CASE EVENT DATE: 20150504
